FAERS Safety Report 18736157 (Version 2)
Quarter: 2021Q3

REPORT INFORMATION
  Report Type: Report from Study
  Country: US (occurrence: US)
  Receive Date: 20210113
  Receipt Date: 20210903
  Transmission Date: 20211014
  Serious: Yes (Hospitalization)
  Sender: FDA-Public Use
  Company Number: US-PFIZER INC-2021011657

PATIENT
  Age: 28 Year
  Sex: Female

DRUGS (17)
  1. CALCIUM CARBONATE W/VITAMIN D [CALCIUM CARBONATE;COLECALCIFEROL] [Concomitant]
     Active Substance: CALCIUM CARBONATE\CHOLECALCIFEROL
     Dosage: [CALCIUM CARBONATE 500MG]/[COLECALCIFEROL 600 IU] (15 MCG); 2 TABLETS
     Route: 048
     Dates: start: 20201112, end: 20201118
  2. DEXAMETHASONE. [Suspect]
     Active Substance: DEXAMETHASONE
     Dosage: 40 MG
     Route: 048
     Dates: start: 20201110, end: 20201110
  3. OLANZAPINE. [Concomitant]
     Active Substance: OLANZAPINE
     Dosage: UNK
     Route: 048
     Dates: start: 20201022, end: 20201022
  4. ZARXIO [Concomitant]
     Active Substance: FILGRASTIM-SNDZ
     Dosage: INJECTION
     Dates: start: 20201105, end: 20201118
  5. MAG?OX [Concomitant]
     Active Substance: MAGNESIUM OXIDE
     Dosage: UNK
     Route: 048
     Dates: start: 20201102, end: 20201115
  6. K?TAB [Concomitant]
     Active Substance: POTASSIUM CHLORIDE
     Dosage: SUSTAINED?RELEASE TABLET
     Route: 048
     Dates: start: 20201112, end: 20201118
  7. RITUXIMAB. [Suspect]
     Active Substance: RITUXIMAB
     Dosage: 750 MG, 1 IN 21 DAYS
     Route: 042
     Dates: start: 20200928, end: 20201112
  8. CISPLATIN. [Suspect]
     Active Substance: CISPLATIN
     Indication: B-CELL LYMPHOMA
     Dosage: 200 MG, 1 IN 21 DAYS, INJECTION
     Route: 042
     Dates: start: 20200928, end: 20201109
  9. ZOFRAN [Concomitant]
     Active Substance: ONDANSETRON HYDROCHLORIDE
     Dosage: UNK
     Route: 048
     Dates: start: 20201102, end: 20201115
  10. CYTARABINE. [Suspect]
     Active Substance: CYTARABINE
     Indication: B-CELL LYMPHOMA
     Dosage: 8200 MG, 1 IN 21 DAYS, INJECTION
     Route: 042
     Dates: start: 20200929, end: 20201110
  11. RITUXIMAB. [Suspect]
     Active Substance: RITUXIMAB
     Indication: B-CELL LYMPHOMA
     Dosage: UNK
     Dates: end: 202003
  12. DEXAMETHASONE. [Suspect]
     Active Substance: DEXAMETHASONE
     Indication: B-CELL LYMPHOMA
     Dosage: 40 MG, INJECTION, DAYS? 1?4
     Route: 042
     Dates: start: 20200928, end: 20201109
  13. ZARXIO [Concomitant]
     Active Substance: FILGRASTIM-SNDZ
     Dosage: INJECTION
     Dates: start: 20201105, end: 20201118
  14. OLANZAPINE. [Concomitant]
     Active Substance: OLANZAPINE
     Dosage: UNK
     Route: 048
     Dates: start: 20201111, end: 20201112
  15. DOCUSATE SODIUM. [Concomitant]
     Active Substance: DOCUSATE SODIUM
     Dosage: UNK
     Route: 048
     Dates: start: 20201109
  16. SULFAMETHOXAZOLE/TRIMETHOPRIM [Concomitant]
     Active Substance: SULFAMETHOXAZOLE\TRIMETHOPRIM
     Dosage: [SULFAMETHOXAZOLE 800MG]/[TRIMETHOPRIM 160MG] 1 TABLET
     Route: 048
     Dates: start: 20201109
  17. PROCHLORPERAZINE. [Concomitant]
     Active Substance: PROCHLORPERAZINE
     Dosage: UNK
     Route: 048
     Dates: start: 20201102, end: 20201115

REACTIONS (1)
  - Febrile neutropenia [Recovered/Resolved]

NARRATIVE: CASE EVENT DATE: 20201120
